FAERS Safety Report 4977551-4 (Version None)
Quarter: 2006Q2

REPORT INFORMATION
  Report Type: 
  Country: None (occurrence: None)
  Receive Date: 20060420
  Receipt Date: 20060411
  Transmission Date: 20061013
  Serious: Yes (Other)
  Sender: FDA-Public Use
  Company Number: US-JNJFOC-20060402815

PATIENT
  Age: 84 Year
  Sex: Male
  Weight: 72.58 kg

DRUGS (1)
  1. RAZADYNE [Suspect]
     Route: 048

REACTIONS (2)
  - INTRAOCULAR PRESSURE INCREASED [None]
  - PROSTATIC SPECIFIC ANTIGEN INCREASED [None]
